FAERS Safety Report 17901873 (Version 4)
Quarter: 2020Q4

REPORT INFORMATION
  Report Type: Report from Study
  Country: DE (occurrence: DE)
  Receive Date: 20200616
  Receipt Date: 20201226
  Transmission Date: 20210113
  Serious: Yes (Hospitalization)
  Sender: FDA-Public Use
  Company Number: DE-ROCHE-2610005

PATIENT
  Age: 68 Year
  Sex: Male
  Weight: 70 kg

DRUGS (22)
  1. ATEZOLIZUMAB. [Suspect]
     Active Substance: ATEZOLIZUMAB
     Indication: METASTATIC MALIGNANT MELANOMA
     Dosage: ON DAY 1 OF EACH 21 DAY-CYCLE.?ON 13/FEB/2020, HE RECEIVED THE MOST RECENT DOSE OF ATEZOLIZUMAB PRIO
     Route: 042
     Dates: start: 20191121
  2. ERYTHROMYCIN. [Concomitant]
     Active Substance: ERYTHROMYCIN
     Dates: start: 20200305
  3. VEMURAFENIB. [Suspect]
     Active Substance: VEMURAFENIB
     Dosage: ON DAY 1 - 28 OF EACH CYCLE
     Route: 048
     Dates: start: 20190823, end: 20191115
  4. PANTOPRAZOL [Concomitant]
     Active Substance: PANTOPRAZOLE SODIUM
     Dates: start: 20190916
  5. ZOLPIDEM [Concomitant]
     Active Substance: ZOLPIDEM TARTRATE
     Dates: start: 20190920
  6. BISOPROLOL [Concomitant]
     Active Substance: BISOPROLOL
     Dates: start: 20191219
  7. COBIMETINIB. [Suspect]
     Active Substance: COBIMETINIB
     Dosage: ON DAY 1 - 21 OF A 28-DAY-CYCLE
     Route: 048
     Dates: start: 20190823, end: 20191115
  8. IBUPROFEN. [Concomitant]
     Active Substance: IBUPROFEN
     Dates: start: 20200213
  9. PREDNITOP (GERMANY) [Concomitant]
     Dates: start: 20200305
  10. JANUMET [Concomitant]
     Active Substance: METFORMIN HYDROCHLORIDE\SITAGLIPTIN PHOSPHATE
     Dosage: 50/850
  11. MUCOFALK [Concomitant]
  12. BETAGALEN [Concomitant]
     Dates: start: 20191108
  13. INFLANEFRAN [Concomitant]
     Active Substance: PREDNISOLONE ACETATE
     Route: 065
     Dates: start: 20200331
  14. SPASMEX (GERMANY) [Concomitant]
  15. VEMURAFENIB. [Suspect]
     Active Substance: VEMURAFENIB
     Dosage: ON DAY 1 - 28 OF EACH CYCLE
     Route: 048
     Dates: start: 20200428
  16. TAMSULOSIN [Concomitant]
     Active Substance: TAMSULOSIN
  17. VEMURAFENIB. [Suspect]
     Active Substance: VEMURAFENIB
     Indication: METASTATIC MALIGNANT MELANOMA
     Dosage: 720 MG BID ON DAY 1 - 28 OF EACH CYCLE?ON 25/MAY/2020, HE RECEIVED THE MOST RECENT DOSE OF VEMURAFEN
     Route: 048
     Dates: start: 20200220, end: 20200525
  18. COBIMETINIB. [Suspect]
     Active Substance: COBIMETINIB
     Dosage: ON DAY 1 - 21 OF A 28-DAY CYCLE
     Route: 048
     Dates: start: 20200428
  19. TAVOR (LORAZEPAM) [Concomitant]
     Active Substance: LORAZEPAM
     Dates: start: 20191212
  20. VOLTAREN [Concomitant]
     Active Substance: DICLOFENAC SODIUM
     Dates: start: 20200213
  21. COBIMETINIB. [Suspect]
     Active Substance: COBIMETINIB
     Indication: METASTATIC MALIGNANT MELANOMA
     Dosage: 40 MG QD ON DAY 1 - 21 OF A 28-DAY-CYCLE?ON 19/MAY/2020, HE RECEIVED THE MOST RECENT DOSE OF COBIMET
     Route: 048
     Dates: start: 20200220, end: 20200525
  22. MINOCYCLINE [Concomitant]
     Active Substance: MINOCYCLINE HYDROCHLORIDE
     Dates: start: 20200305

REACTIONS (2)
  - Encephalitis [Recovered/Resolved]
  - Uveitis [Recovered/Resolved]

NARRATIVE: CASE EVENT DATE: 20200522
